FAERS Safety Report 5916268-6 (Version None)
Quarter: 2008Q4

REPORT INFORMATION
  Report Type: 
  Country: None (occurrence: None)
  Receive Date: 20081013
  Receipt Date: 20081002
  Transmission Date: 20090506
  Serious: Yes (Other)
  Sender: FDA-Public Use
  Company Number: PHHY2008BR23332

PATIENT
  Age: 82 Year
  Sex: Female

DRUGS (3)
  1. EXELON [Suspect]
     Dosage: 9 MG/5CM2
     Route: 062
  2. MEMANTINE (ALOIS) [Concomitant]
     Dosage: UNK
  3. NEULEPTIL [Concomitant]
     Dosage: UNK

REACTIONS (2)
  - NORMAL PRESSURE HYDROCEPHALUS [None]
  - SYNCOPE [None]
